FAERS Safety Report 13877558 (Version 2)
Quarter: 2017Q3

REPORT INFORMATION
  Report Type: Spontaneous
  Country: US (occurrence: US)
  Receive Date: 20170817
  Receipt Date: 20170911
  Transmission Date: 20171127
  Serious: Yes (Hospitalization)
  Sender: FDA-Public Use
  Company Number: US-B.I. PHARMACEUTICALS,INC./RIDGEFIELD-2017-BI-045371

PATIENT
  Age: 76 Year
  Sex: Female
  Weight: 62.14 kg

DRUGS (16)
  1. ASPIRIN [Concomitant]
     Indication: CARDIAC DISORDER
     Dosage: DAILY;  FORM STRENGTH: 81MG; FORMULATION: TABLET
     Route: 048
     Dates: start: 2015
  2. METFORMIN [Concomitant]
     Indication: DIABETES MELLITUS
     Dosage: TWICE A DAY;  FORM STRENGTH: 500MG
     Route: 065
     Dates: end: 20170810
  3. SIMVASTATIN [Concomitant]
     Indication: HYPERLIPIDAEMIA
     Dosage: DAILY;  FORM STRENGTH: 5MG
     Route: 065
  4. RANITIDINE [Concomitant]
     Indication: GASTROOESOPHAGEAL REFLUX DISEASE
     Dosage: TWICE A DAY;  FORM STRENGTH: 150MG
     Route: 065
  5. METOPROLOL [Concomitant]
     Indication: HYPERTENSION
     Dosage: DAILY;  FORM STRENGTH: 100MG
     Route: 065
  6. VITAMIN C [Concomitant]
     Indication: PRODUCT USED FOR UNKNOWN INDICATION
     Dosage: DAILY;  FORM STRENGTH: 500MG
     Route: 065
  7. VITAMIN D3 [Concomitant]
     Indication: PRODUCT USED FOR UNKNOWN INDICATION
     Dosage: DAILY;  FORM STRENGTH: 400IU
     Route: 065
  8. HCTZ [Concomitant]
     Active Substance: HYDROCHLOROTHIAZIDE
     Indication: RENAL DISORDER
     Dosage: DAILY;  FORM STRENGTH: 25MG
     Route: 065
     Dates: end: 20170810
  9. ALDACTONE [Concomitant]
     Indication: HYPERTENSION
  10. BIOTIN [Concomitant]
     Active Substance: BIOTIN
     Indication: RENAL DISORDER
     Dosage: DAILY;  FORM STRENGTH: 1000MG; FORMULATION: TABLET
     Route: 048
  11. TRAJENTA [Suspect]
     Active Substance: LINAGLIPTIN
     Indication: DIABETES MELLITUS
     Route: 048
     Dates: start: 20150526, end: 20170811
  12. VITAMIN E [Concomitant]
     Indication: PRODUCT USED FOR UNKNOWN INDICATION
     Dosage: DAILY;  FORM STRENGTH: 100IU
     Route: 065
  13. NITROSTAT [Concomitant]
     Indication: CHEST PAIN
     Dosage: AS NEEDED;  FORM STRENGTH: 0.4MG
     Route: 065
  14. AMLODIPINE [Concomitant]
     Indication: HYPERTENSION
     Dosage: TWICE A DAY;  FORM STRENGTH: 10MG
     Route: 065
  15. CLONIDINE [Concomitant]
     Indication: HYPERTENSION
     Dosage: 1/2 TWICE A DAY;  FORM STRENGTH: 0.1MG
     Route: 065
  16. ALDACTONE [Concomitant]
     Indication: RENAL DISORDER
     Dosage: DAILY;  FORM STRENGTH: 25MG
     Route: 065
     Dates: start: 2015

REACTIONS (1)
  - Seizure [Recovered/Resolved]

NARRATIVE: CASE EVENT DATE: 20170810
